FAERS Safety Report 24630696 (Version 1)
Quarter: 2024Q4

REPORT INFORMATION
  Report Type: Spontaneous
  Country: US (occurrence: None)
  Receive Date: 20241116
  Receipt Date: 20241116
  Transmission Date: 20250114
  Serious: Yes (Death, Hospitalization)
  Sender: Public
  Company Number: None

PATIENT
  Age: 74 Year
  Sex: Female

DRUGS (1)
  1. LENALIDOMIDE [Suspect]
     Active Substance: LENALIDOMIDE
     Indication: Chronic lymphocytic leukaemia
     Dosage: FREQUENCY : DAILY;?
     Route: 048
     Dates: start: 20240617, end: 20240819

REACTIONS (4)
  - Hypercalcaemia [None]
  - Encephalopathy [None]
  - Urinary tract infection [None]
  - Imaging procedure abnormal [None]

NARRATIVE: CASE EVENT DATE: 20240822
